FAERS Safety Report 8350687-6 (Version None)
Quarter: 2012Q2

REPORT INFORMATION
  Report Type: 
  Country: None (occurrence: None)
  Receive Date: 20120510
  Receipt Date: 20120504
  Transmission Date: 20120825
  Serious: Yes (Life-Threatening)
  Sender: FDA-Public Use
  Company Number: US-JNJFOC-20120302662

PATIENT
  Sex: Female

DRUGS (15)
  1. PRIMIDONE [Concomitant]
     Route: 048
  2. PROZAC [Suspect]
     Indication: DEPRESSION
     Route: 048
  3. SINGULAIR [Concomitant]
     Route: 048
  4. VALIUM [Concomitant]
     Route: 048
  5. BACLOFEN [Concomitant]
     Route: 048
  6. INVEGA SUSTENNA [Suspect]
     Indication: SCHIZOAFFECTIVE DISORDER
     Route: 030
     Dates: start: 20110501
  7. PROTONIX [Concomitant]
     Route: 048
  8. OXYCODONE HCL [Concomitant]
     Dosage: TWICE DAILY OR AS NEEDED
     Route: 048
  9. FENOFIBRATE [Concomitant]
     Route: 048
  10. PROZAC [Suspect]
     Route: 048
     Dates: end: 20120302
  11. VESICARE [Concomitant]
     Route: 048
  12. CARAFATE [Concomitant]
     Route: 048
  13. ALLOPURINOL [Concomitant]
     Route: 048
  14. PHENERGAN [Concomitant]
     Route: 048
  15. RANITIDINE [Concomitant]
     Route: 048

REACTIONS (2)
  - HEPATIC STEATOSIS [None]
  - ABNORMAL WEIGHT GAIN [None]
